FAERS Safety Report 17330421 (Version 1)
Quarter: 2020Q1

REPORT INFORMATION
  Report Type: Spontaneous
  Country: US (occurrence: US)
  Receive Date: 20200128
  Receipt Date: 20200128
  Transmission Date: 20200409
  Serious: Yes (Hospitalization)
  Sender: FDA-Public Use
  Company Number: US-JNJFOC-20200129227

PATIENT
  Age: 58 Year
  Sex: Male

DRUGS (1)
  1. INVOKAMET [Suspect]
     Active Substance: CANAGLIFLOZIN\METFORMIN HYDROCHLORIDE
     Indication: PRODUCT USED FOR UNKNOWN INDICATION
     Route: 048

REACTIONS (6)
  - Osteomyelitis [Recovering/Resolving]
  - Gangrene [Recovering/Resolving]
  - Diabetic foot infection [Recovering/Resolving]
  - Acute kidney injury [Recovering/Resolving]
  - Toe amputation [Unknown]
  - Sepsis [Recovering/Resolving]

NARRATIVE: CASE EVENT DATE: 201704
